FAERS Safety Report 9022630 (Version 3)
Quarter: 2013Q2

REPORT INFORMATION
  Report Type: Report from Study
  Country: US (occurrence: US)
  Receive Date: 20130120
  Receipt Date: 20130425
  Transmission Date: 20140414
  Serious: Yes (Hospitalization)
  Sender: FDA-Public Use
  Company Number: US-009507513-1301USA008762

PATIENT
  Age: 84 Year
  Sex: Female
  Weight: 60.8 kg

DRUGS (11)
  1. FUROSEMIDE [Suspect]
     Indication: OEDEMA
     Dosage: 40 MG, BID
     Route: 048
     Dates: start: 20120813
  2. PRINZIDE [Suspect]
     Indication: HYPERTENSION
     Dosage: 12.5/20 MG, QD
     Route: 048
     Dates: start: 2009, end: 20121212
  3. STUDY DRUG (UNSPECIFIED) [Suspect]
     Indication: OSTEOARTHRITIS
     Dosage: UNK
     Dates: start: 20121026, end: 20121123
  4. STUDY DRUG (UNSPECIFIED) [Suspect]
     Indication: RHEUMATOID ARTHRITIS
  5. ALENDRONATE SODIUM [Concomitant]
     Indication: OSTEOPOROSIS
     Dosage: 70 MG, QW
     Route: 048
     Dates: start: 1997
  6. NEXIUM [Concomitant]
     Indication: PROPHYLAXIS
     Dosage: UNK
     Dates: start: 20121026, end: 20121123
  7. ZOLPIDEM TARTRATE [Concomitant]
     Indication: INSOMNIA
     Dosage: 10 MG, UNK
     Dates: start: 2007
  8. CRESTOR [Concomitant]
     Indication: HYPERCHOLESTEROLAEMIA
     Dosage: 10 MG, QD
     Dates: start: 2011
  9. PREDNISONE [Concomitant]
     Indication: OSTEOARTHRITIS
     Dosage: 2.5 MG, UNK
     Dates: start: 20121206
  10. VITAMIN D (UNSPECIFIED) [Concomitant]
     Indication: OSTEOPOROSIS
     Dosage: 2000 UNITS
     Dates: start: 1997
  11. CELEBREX [Concomitant]
     Indication: OSTEOARTHRITIS
     Dosage: 100 MG, UNK
     Dates: start: 20121127, end: 20121201

REACTIONS (1)
  - Syncope [Recovered/Resolved]
